FAERS Safety Report 10370440 (Version 1)
Quarter: 2014Q3

REPORT INFORMATION
  Report Type: Spontaneous
  Country: US (occurrence: None)
  Receive Date: 20140805
  Receipt Date: 20140805
  Transmission Date: 20150326
  Serious: Yes (Other)
  Sender: FDA-Public Use
  Company Number: US-H14001-14-00320

PATIENT
  Age: 15 Year
  Sex: Male

DRUGS (6)
  1. HETASTARCH. [Concomitant]
     Active Substance: HETASTARCH
  2. FAMOTIDINE. [Concomitant]
     Active Substance: FAMOTIDINE
  3. DEXAMETHASONE (DEXAMETHASONE) (UNKNOWN) (DEXAMETHASONE) [Suspect]
     Active Substance: DEXAMETHASONE
     Indication: POSTOPERATIVE CARE
     Dosage: (DAY OF OPERATION, POSTOPERATIVE DAY 1, 2) (NOT OTHERWISE SPECIFIED)
     Route: 042
     Dates: start: 2010, end: 2010
  4. RINGER^S SOLUTION [Concomitant]
     Active Substance: RINGER^S SOLUTION
  5. KETOROLAC [Suspect]
     Active Substance: KETOROLAC\KETOROLAC TROMETHAMINE
     Indication: POSTOPERATIVE CARE
     Dosage: (ON THE DAY OF OPERATION) (NOT OTHERWISE SPECIFIED)
     Route: 042
     Dates: start: 2010, end: 2010
  6. PANTOPRAZOLE [Concomitant]
     Active Substance: PANTOPRAZOLE SODIUM

REACTIONS (10)
  - International normalised ratio decreased [None]
  - Tachycardia [None]
  - Gastrointestinal haemorrhage [None]
  - Duodenal ulcer [None]
  - Gastric ulcer [None]
  - Haemoglobin decreased [None]
  - Upper gastrointestinal haemorrhage [None]
  - Prothrombin time prolonged [None]
  - Tachypnoea [None]
  - Lethargy [None]

NARRATIVE: CASE EVENT DATE: 2010
